FAERS Safety Report 7537982-5 (Version None)
Quarter: 2011Q2

REPORT INFORMATION
  Report Type: 
  Country: None (occurrence: None)
  Receive Date: 20110609
  Receipt Date: 20110601
  Transmission Date: 20111010
  Serious: Yes (Hospitalization)
  Sender: FDA-Public Use
  Company Number: US-GENENTECH-318323

PATIENT
  Sex: Male
  Weight: 107.3 kg

DRUGS (4)
  1. ALBUTEROL SULFATE AUTOHALER [Concomitant]
     Indication: PRODUCT USED FOR UNKNOWN INDICATION
     Dosage: UNK
  2. SINGULAIR [Concomitant]
     Indication: PRODUCT USED FOR UNKNOWN INDICATION
     Dosage: UNK
  3. XOLAIR [Suspect]
     Indication: ASTHMA
     Dosage: 300 MG, Q2W
     Route: 058
     Dates: start: 20101111, end: 20110317
  4. SYMBICORT [Concomitant]
     Indication: PRODUCT USED FOR UNKNOWN INDICATION
     Dosage: UNK

REACTIONS (2)
  - CLOSTRIDIUM DIFFICILE COLITIS [None]
  - CANDIDIASIS [None]
